FAERS Safety Report 8345373-2 (Version None)
Quarter: 2012Q2

REPORT INFORMATION
  Report Type: 
  Country: None (occurrence: None)
  Receive Date: 20120508
  Receipt Date: 20120430
  Transmission Date: 20120825
  Serious: Yes (Hospitalization)
  Sender: FDA-Public Use
  Company Number: US-CELGENEUS-163-21880-12050054

PATIENT
  Sex: Male

DRUGS (1)
  1. REVLIMID [Suspect]
     Indication: MULTIPLE MYELOMA
     Dosage: 25 MILLIGRAM
     Route: 048
     Dates: start: 20120201, end: 20120401

REACTIONS (4)
  - LOSS OF CONSCIOUSNESS [None]
  - FIBRIN D DIMER INCREASED [None]
  - HEART RATE IRREGULAR [None]
  - DEHYDRATION [None]
